FAERS Safety Report 5380951-4 (Version None)
Quarter: 2007Q3

REPORT INFORMATION
  Report Type: 
  Country: None (occurrence: None)
  Receive Date: 20070702
  Receipt Date: 20060711
  Transmission Date: 20080115
  Serious: Yes (Hospitalization)
  Sender: FDA-Public Use
  Company Number: SPV1-2006-00237

PATIENT
  Age: 14 Year
  Sex: Male

DRUGS (4)
  1. PENTASA [Suspect]
     Indication: COLITIS ULCERATIVE
     Dosage: 1500 MG DAILY, ORAL, 1 G DAILY, RECTAL, 3 G DAILY
     Route: 048
     Dates: start: 20060608, end: 20060612
  2. PENTASA [Suspect]
     Indication: COLITIS ULCERATIVE
     Dosage: 1500 MG DAILY, ORAL, 1 G DAILY, RECTAL, 3 G DAILY
     Route: 048
     Dates: start: 20060612, end: 20060621
  3. PENTASA [Suspect]
     Indication: COLITIS ULCERATIVE
     Dosage: 1500 MG DAILY, ORAL, 1 G DAILY, RECTAL, 3 G DAILY
     Route: 048
     Dates: start: 20060612, end: 20060621
  4. FLAGYL [Suspect]
     Dosage: ORAL
     Route: 048
     Dates: start: 20060603, end: 20060612

REACTIONS (1)
  - PANCREATITIS ACUTE [None]
